FAERS Safety Report 5963550-2 (Version None)
Quarter: 2008Q4

REPORT INFORMATION
  Report Type: 
  Country: None (occurrence: None)
  Receive Date: 20081124
  Receipt Date: 20080204
  Transmission Date: 20090506
  Serious: No
  Sender: FDA-Public Use
  Company Number: US-BAYER-200810537BCC

PATIENT
  Age: 65 Year
  Sex: Male
  Weight: 113 kg

DRUGS (1)
  1. ALEVE [Suspect]
     Indication: ARTHRITIS
     Route: 048
     Dates: start: 20080131, end: 20080204

REACTIONS (1)
  - INSOMNIA [None]
